FAERS Safety Report 8338906-3 (Version None)
Quarter: 2012Q2

REPORT INFORMATION
  Report Type: 
  Country: None (occurrence: None)
  Receive Date: 20120506
  Receipt Date: 20120502
  Transmission Date: 20120825
  Serious: Yes (Hospitalization)
  Sender: FDA-Public Use
  Company Number: US-MEDIMMUNE-MEDI-0015282

PATIENT
  Sex: Male
  Weight: 3.292 kg

DRUGS (3)
  1. SYNAGIS [Suspect]
     Dates: end: 20120221
  2. ZANTAC [Concomitant]
     Route: 048
     Dates: start: 20111109
  3. SYNAGIS [Suspect]
     Dates: start: 20120301, end: 20120301

REACTIONS (1)
  - PNEUMONIA [None]
